FAERS Safety Report 9005872 (Version 1)
Quarter: 2013Q1

REPORT INFORMATION
  Report Type: Spontaneous
  Country: US (occurrence: US)
  Receive Date: 20130109
  Receipt Date: 20130109
  Transmission Date: 20140127
  Serious: Yes (Other)
  Sender: FDA-Public Use
  Company Number: US-009507513-1301USA001573

PATIENT
  Age: 32 Year
  Sex: Male

DRUGS (4)
  1. SINGULAIR [Suspect]
     Indication: HYPERSENSITIVITY
     Route: 048
  2. ALLEGRA [Suspect]
     Indication: ECZEMA
  3. NASONEX [Suspect]
     Indication: RHINITIS ALLERGIC
     Dosage: 50 UG, UNK
     Route: 045
  4. ELIDEL [Suspect]
     Route: 057

REACTIONS (4)
  - Visual impairment [Unknown]
  - Vision blurred [Unknown]
  - Cataract operation [Unknown]
  - Cataract [Unknown]
